FAERS Safety Report 4576355-4 (Version None)
Quarter: 2005Q1

REPORT INFORMATION
  Report Type: 
  Country: None (occurrence: None)
  Receive Date: 20050207
  Receipt Date: 20050201
  Transmission Date: 20050727
  Serious: Yes (Hospitalization, Other)
  Sender: FDA-Public Use
  Company Number: DEWYE344517JAN05

PATIENT
  Age: 27 Year
  Sex: Male

DRUGS (2)
  1. TREVILAR RETARD (VENLAFAXINE HYDROCHLORIDE) [Suspect]
     Dosage: 18 TABLETS (OVERDOSE AMOUNT: 1350 MG) ORAL
     Route: 048
     Dates: start: 20050115, end: 20050115
  2. ZOPICLONE (ZOPICLONE, , 0) [Concomitant]
     Dosage: 10 TABLETS (OVERDOSE AMOUNT: 75 MG) ORAL
     Route: 048
     Dates: start: 20050115, end: 20050115

REACTIONS (4)
  - DEPRESSED LEVEL OF CONSCIOUSNESS [None]
  - FATIGUE [None]
  - INTENTIONAL MISUSE [None]
  - MYDRIASIS [None]
